FAERS Safety Report 18854830 (Version 1)
Quarter: 2021Q1

REPORT INFORMATION
  Report Type: Spontaneous
  Country: FR (occurrence: FR)
  Receive Date: 20210205
  Receipt Date: 20210205
  Transmission Date: 20210420
  Serious: Yes (Hospitalization)
  Sender: FDA-Public Use
  Company Number: FR-MYLANLABS-2021M1007219

PATIENT
  Age: 89 Year
  Sex: Male
  Weight: 69 kg

DRUGS (1)
  1. DEXAMETHASONE. [Suspect]
     Active Substance: DEXAMETHASONE
     Indication: CORONAVIRUS INFECTION
     Dosage: 6 MILLIGRAM
     Route: 042
     Dates: start: 20201113

REACTIONS (2)
  - Mixed anxiety and depressive disorder [Not Recovered/Not Resolved]
  - Off label use [Unknown]

NARRATIVE: CASE EVENT DATE: 20201120
